FAERS Safety Report 9336363 (Version 2)
Quarter: 2013Q2

REPORT INFORMATION
  Report Type: Spontaneous
  Country: CA (occurrence: CA)
  Receive Date: 20130607
  Receipt Date: 20130625
  Transmission Date: 20140414
  Serious: Yes (Hospitalization, Other)
  Sender: FDA-Public Use
  Company Number: CA-AMGEN-CANSP2013039492

PATIENT
  Age: 79 Year
  Sex: Female
  Weight: 57.27 kg

DRUGS (1)
  1. PROLIA [Suspect]
     Indication: OSTEOPOROSIS POSTMENOPAUSAL
     Dosage: UNK
     Dates: start: 20120402

REACTIONS (5)
  - Pulmonary oedema [Unknown]
  - Pneumonia [Unknown]
  - Adrenal insufficiency [Unknown]
  - Hypersensitivity [Unknown]
  - Acne [Unknown]
